FAERS Safety Report 9535994 (Version 1)
Quarter: 2013Q2

REPORT INFORMATION
  Report Type: Spontaneous
  Country: US (occurrence: None)
  Receive Date: 20130507
  Receipt Date: 20130507
  Transmission Date: 20140414
  Serious: Yes (Other)
  Sender: FDA-Public Use
  Company Number: PHEH2012US023914

PATIENT
  Age: 51 Year
  Sex: Female

DRUGS (4)
  1. AFINITOR [Suspect]
     Indication: RENAL CANCER
     Route: 048
     Dates: start: 20120928, end: 20121128
  2. EXEMESTANE (EXEMESTANE) [Concomitant]
  3. MULTI-VIT (VITAMINS NOS) [Concomitant]
  4. ASPIRIN (ACETYLSALICYLIC ACID) [Concomitant]

REACTIONS (1)
  - Therapeutic response decreased [None]
